FAERS Safety Report 26129108 (Version 2)
Quarter: 2025Q4

REPORT INFORMATION
  Report Type: Spontaneous
  Country: EU (occurrence: EU)
  Receive Date: 20251208
  Receipt Date: 20251221
  Transmission Date: 20260118
  Serious: Yes (Hospitalization, Other)
  Sender: Haleon PLC
  Company Number: EU-002147023-NVSC2024DE234886

PATIENT
  Sex: Female

DRUGS (13)
  1. DICLOFENAC [Suspect]
     Active Substance: DICLOFENAC
     Indication: Product used for unknown indication
     Dosage: UNK, ROUTE: UNKNOWN
  2. ETORICOXIB [Suspect]
     Active Substance: ETORICOXIB
     Indication: Product used for unknown indication
     Dosage: 90 MG, ROUTE: UNKNOWN
     Dates: start: 20181217, end: 20190615
  3. HYRIMOZ [Suspect]
     Active Substance: ADALIMUMAB-ADAZ
     Indication: Product used for unknown indication
     Dosage: 40 MG?PATIENT ROA: UNKNOWN
     Dates: start: 20200316, end: 20200830
  4. IBUPROFEN [Concomitant]
     Active Substance: IBUPROFEN
     Indication: Product used for unknown indication
     Dosage: 800 MG ROA: UNKNOWN
     Dates: start: 20160101, end: 20181126
  5. IBUPROFEN [Concomitant]
     Active Substance: IBUPROFEN
     Dosage: 600 MG ROA: UNKNOWN, FIRST ADMIN DATE: 2023-02-01
  6. IBUPROFEN [Concomitant]
     Active Substance: IBUPROFEN
     Dosage: 1200 MG ROA: UNKNOWN
  7. IDACIO [Concomitant]
     Active Substance: ADALIMUMAB-AACF
     Indication: Product used for unknown indication
     Dosage: 40 MG ROA: UNKNOWN, FIRST ADMIN DATE: 2022-11-11
  8. IDACIO [Concomitant]
     Active Substance: ADALIMUMAB-AACF
     Dosage: 40 MG ROA: UNKNOWN, FIRST ADMIN DATE: 2021-09-05
  9. IDACIO [Concomitant]
     Active Substance: ADALIMUMAB-AACF
     Dosage: 40 MG ROA: UNKNOWN, FIRST ADMIN DATE: 2021-06-03
  10. IDACIO [Concomitant]
     Active Substance: ADALIMUMAB-AACF
     Dosage: 40 MG ROA: UNKNOWN
     Dates: start: 20200913, end: 20210201
  11. ADALIMUMAB [Concomitant]
     Active Substance: ADALIMUMAB
     Indication: Product used for unknown indication
     Dosage: 40 MG ROA: UNKNOWN
     Dates: start: 20190312, end: 20190702
  12. ADALIMUMAB [Concomitant]
     Active Substance: ADALIMUMAB
     Dosage: 40 MG ROA: UNKNOWN
     Dates: start: 20190813, end: 20200302
  13. HUMIRA [Concomitant]
     Active Substance: ADALIMUMAB
     Indication: Product used for unknown indication
     Dosage: 40 MG ROA: UNKNOWN
     Dates: start: 20180928, end: 20190104

REACTIONS (4)
  - Atrial fibrillation [Unknown]
  - Groin pain [Unknown]
  - Drug hypersensitivity [Unknown]
  - Uveitis [Unknown]

NARRATIVE: CASE EVENT DATE: 20210521
